FAERS Safety Report 7288517-6 (Version None)
Quarter: 2011Q1

REPORT INFORMATION
  Report Type: 
  Country: None (occurrence: None)
  Receive Date: 20110211
  Receipt Date: 20110208
  Transmission Date: 20110831
  Serious: Yes (Other)
  Sender: FDA-Public Use
  Company Number: GB-ROCHE-758654

PATIENT
  Age: 51 Year
  Sex: Female
  Weight: 43.2 kg

DRUGS (10)
  1. COTRIM [Concomitant]
     Dosage: DRUG NAME: NEOLAB COTRIMOXAZOLE.
  2. LEVOTHYROXINE SODIUM [Concomitant]
  3. ELLESTE-DUET [Concomitant]
  4. LANSOPRAZOLE [Concomitant]
  5. CELLCEPT [Suspect]
     Indication: GRAFT VERSUS HOST DISEASE
     Route: 048
     Dates: start: 20040101
  6. URSODIOL [Concomitant]
  7. VORICONAZOLE [Suspect]
     Indication: FUNGAL INFECTION
     Route: 048
     Dates: start: 20020101, end: 20101001
  8. CLARITHROMYCIN [Concomitant]
  9. BENDROFLUAZIDE [Concomitant]
  10. OXYTETRACYCLINE [Concomitant]

REACTIONS (3)
  - ACTINIC KERATOSIS [None]
  - DYSPLASIA [None]
  - SKIN CANCER [None]
